FAERS Safety Report 12465218 (Version 1)
Quarter: 2016Q2

REPORT INFORMATION
  Report Type: Spontaneous
  Country: IE (occurrence: IE)
  Receive Date: 20160614
  Receipt Date: 20160614
  Transmission Date: 20160815
  Serious: Yes (Hospitalization)
  Sender: FDA-Public Use
  Company Number: IE-EMD SERONO-8088019

PATIENT
  Age: 33 Year
  Sex: Female

DRUGS (5)
  1. OVITRELLE [Suspect]
     Active Substance: CHORIOGONADOTROPIN ALFA
     Indication: ASSISTED FERTILISATION
     Dosage: FORM STRENGTH:250 MICROGRAMS/G
     Dates: start: 20160401
  2. GONAL-F [Suspect]
     Active Substance: FOLLITROPIN
     Indication: ASSISTED FERTILISATION
     Dosage: FORM STRENGTH:2.5 MICROGRAMS/G
     Dates: start: 20160401
  3. CETROTIDE [Suspect]
     Active Substance: CETRORELIX ACETATE
     Indication: ASSISTED FERTILISATION
     Dates: start: 20160401
  4. LUVERIS [Suspect]
     Active Substance: LUTROPIN ALFA
     Indication: ASSISTED FERTILISATION
     Dates: start: 20160401
  5. CRINONE [Suspect]
     Active Substance: PROGESTERONE
     Indication: ASSISTED FERTILISATION
     Dates: end: 20160401

REACTIONS (3)
  - Ovarian hyperstimulation syndrome [Recovered/Resolved]
  - Diarrhoea [Recovered/Resolved]
  - Vomiting [Recovered/Resolved]

NARRATIVE: CASE EVENT DATE: 20160421
